FAERS Safety Report 4696030-5 (Version None)
Quarter: 2005Q2

REPORT INFORMATION
  Report Type: 
  Country: None (occurrence: None)
  Receive Date: 20050621
  Receipt Date: 20050608
  Transmission Date: 20051028
  Serious: Yes (Other)
  Sender: FDA-Public Use
  Company Number: AU-GLAXOSMITHKLINE-B0384576A

PATIENT
  Age: 28 Year
  Sex: Female

DRUGS (1)
  1. ZYBAN [Suspect]
     Indication: DRUG USE FOR UNKNOWN INDICATION
     Dates: start: 20050525, end: 20050604

REACTIONS (5)
  - DYSPNOEA [None]
  - HEART RATE INCREASED [None]
  - HUNGER [None]
  - LOSS OF CONSCIOUSNESS [None]
  - PANIC ATTACK [None]
